FAERS Safety Report 4131887 (Version 2)
Quarter: 2012Q4

REPORT INFORMATION
  Report Type: 
  Country: PH (occurrence: PH)
  Receive Date: 20040428
  Receipt Date: 20120927
  Transmission Date: 20130627
  Serious: Yes (Other)
  Sender: FDA-Public Use
  Company Number: PHHO2004PH05641

PATIENT
  Age: 50 Year
  Sex: Female
  Weight: 50 kg

DRUGS (2)
  1. GLIVEC [Suspect]
     Indication: CHRONIC MYELOID LEUKAEMIA
     Dosage: 400 mg, QD
     Route: 048
     Dates: start: 20031223, end: 20040109
  2. GLIVEC [Suspect]
     Route: 048
     Dates: start: 20040402, end: 20040402

REACTIONS (14)
  - Hypersensitivity [Recovered/Resolved]
  - Bone marrow failure [Recovered/Resolved]
  - Thrombocytopenia [Recovered/Resolved]
  - Skin haemorrhage [Recovered/Resolved]
  - Mouth haemorrhage [Recovered/Resolved]
  - Rash maculo-papular [Recovered/Resolved]
  - Periorbital oedema [Recovered/Resolved]
  - Lip swelling [Recovered/Resolved]
  - Purpura [Recovered/Resolved]
  - Leukopenia [Recovered/Resolved]
  - Neutropenia [Recovered/Resolved]
  - Anaemia [Recovered/Resolved]
  - Rash pruritic [None]
  - Haematoma [None]
